FAERS Safety Report 9927057 (Version 1)
Quarter: 2014Q1

REPORT INFORMATION
  Report Type: Spontaneous
  Country: US (occurrence: US)
  Receive Date: 20140226
  Receipt Date: 20140226
  Transmission Date: 20141002
  Serious: No
  Sender: FDA-Public Use
  Company Number: US-AMGEN-USASP2014000726

PATIENT
  Age: 46 Year
  Sex: Female
  Weight: 99.77 kg

DRUGS (4)
  1. ENBREL [Suspect]
     Indication: PRODUCT USED FOR UNKNOWN INDICATION
     Dosage: 50 MG, QWK
     Route: 058
  2. AMLODIPINE [Concomitant]
     Dosage: 2.5 MG, UNK
  3. LOVASTATIN [Concomitant]
     Dosage: 10 MG, UNK
  4. LISINOPRIL HYDROCHLORTHIAZID [Concomitant]
     Dosage: 10-12.5

REACTIONS (1)
  - Arthralgia [Unknown]
